FAERS Safety Report 18623153 (Version 1)
Quarter: 2020Q4

REPORT INFORMATION
  Report Type: Report from Study
  Country: IL (occurrence: IL)
  Receive Date: 20201216
  Receipt Date: 20201216
  Transmission Date: 20210114
  Serious: No
  Sender: FDA-Public Use
  Company Number: IL-RECORDATI RARE DISEASES-2103048

PATIENT
  Age: 37 Year
  Sex: Female

DRUGS (5)
  1. SIGNIFOR LAR [Suspect]
     Active Substance: PASIREOTIDE PAMOATE
  2. SIGNIFOR LAR [Suspect]
     Active Substance: PASIREOTIDE PAMOATE
  3. SIGNIFOR LAR [Suspect]
     Active Substance: PASIREOTIDE PAMOATE
     Dates: start: 20190709
  4. SIGNIFOR LAR [Suspect]
     Active Substance: PASIREOTIDE PAMOATE
     Dates: start: 20191103
  5. SIGNIFOR LAR [Suspect]
     Active Substance: PASIREOTIDE PAMOATE
     Indication: ACROMEGALY
     Dates: start: 20190610

REACTIONS (2)
  - Abortion [Unknown]
  - Maternal exposure during pregnancy [Unknown]
